FAERS Safety Report 5097250-0 (Version None)
Quarter: 2006Q3

REPORT INFORMATION
  Report Type: 
  Country: None (occurrence: None)
  Receive Date: 20060901
  Receipt Date: 20060821
  Transmission Date: 20061208
  Serious: Yes (Disabling)
  Sender: FDA-Public Use
  Company Number: 2006-146876-NL

PATIENT
  Age: 40 Year
  Sex: Female

DRUGS (2)
  1. MIRTAZAPINE [Suspect]
     Indication: ANXIETY
  2. MIRTAZAPINE [Suspect]
     Indication: DEPRESSION

REACTIONS (6)
  - ARTHRALGIA [None]
  - BURNING SENSATION [None]
  - MOBILITY DECREASED [None]
  - MUSCLE DISORDER [None]
  - MYALGIA [None]
  - PAIN IN EXTREMITY [None]
